FAERS Safety Report 8525093-1 (Version None)
Quarter: 2012Q3

REPORT INFORMATION
  Report Type: 
  Country: None (occurrence: None)
  Receive Date: 20120720
  Receipt Date: 20120709
  Transmission Date: 20120928
  Serious: Yes (Other)
  Sender: FDA-Public Use
  Company Number: NO-ROCHE-1034850

PATIENT
  Sex: Female
  Weight: 56 kg

DRUGS (14)
  1. ATROVENT [Concomitant]
  2. POTASSIUM CHLORIDE [Concomitant]
  3. XOLAIR [Suspect]
     Indication: HYPERSENSITIVITY
  4. LIPITOR [Concomitant]
  5. ACETYLSALICYLIC ACID SRT [Concomitant]
  6. PREDNISOLONE [Concomitant]
  7. SINGULAIR [Concomitant]
  8. VENTOLIN [Concomitant]
  9. ZYRTEC [Concomitant]
  10. LOVAZA [Concomitant]
  11. XOLAIR [Suspect]
     Indication: ASTHMA
     Dates: start: 20110501
  12. NUELIN [Concomitant]
  13. TRISEQUENS [Concomitant]
  14. VITAMIN B-12 [Concomitant]

REACTIONS (17)
  - CHILLS [None]
  - DERMATITIS PSORIASIFORM [None]
  - VISION BLURRED [None]
  - ALOPECIA [None]
  - HEART RATE INCREASED [None]
  - PRURITUS [None]
  - EYE SWELLING [None]
  - MALAISE [None]
  - VITAMIN D DEFICIENCY [None]
  - HEADACHE [None]
  - FORCED EXPIRATORY VOLUME DECREASED [None]
  - VISUAL IMPAIRMENT [None]
  - ANAPHYLACTIC REACTION [None]
  - RENAL IMPAIRMENT [None]
  - SERUM SICKNESS [None]
  - DYSPNOEA [None]
  - HYPERSOMNIA [None]
